FAERS Safety Report 6580601-5 (Version None)
Quarter: 2010Q1

REPORT INFORMATION
  Report Type: 
  Country: None (occurrence: None)
  Receive Date: 20100212
  Receipt Date: 20100209
  Transmission Date: 20100710
  Serious: Yes (Death)
  Sender: FDA-Public Use
  Company Number: DE-SANOFI-AVENTIS-2010SA007504

PATIENT
  Age: 74 Year
  Sex: Male
  Weight: 85 kg

DRUGS (5)
  1. TAXOTERE [Suspect]
     Route: 042
     Dates: start: 20090701, end: 20091101
  2. ZOFRAN [Concomitant]
     Route: 042
     Dates: start: 20090701, end: 20091101
  3. FORTECORTIN [Concomitant]
     Route: 042
     Dates: start: 20090701, end: 20091101
  4. RANITIDINE [Concomitant]
     Route: 042
     Dates: start: 20090701, end: 20091101
  5. CLEMASTINE FUMARATE [Concomitant]
     Route: 042
     Dates: start: 20090701, end: 20091101

REACTIONS (3)
  - PNEUMONITIS [None]
  - RESPIRATORY FAILURE [None]
  - RESPIRATORY GAS EXCHANGE DISORDER [None]
